FAERS Safety Report 10075538 (Version 2)
Quarter: 2014Q2

REPORT INFORMATION
  Report Type: Spontaneous
  Country: US (occurrence: US)
  Receive Date: 20140414
  Receipt Date: 20140618
  Transmission Date: 20141212
  Serious: Yes (Other)
  Sender: FDA-Public Use
  Company Number: US-B.I. PHARMACEUTICALS,INC./RIDGEFIELD-2014-BI-14542BP

PATIENT
  Age: 84 Year
  Sex: Female
  Weight: 55.7 kg

DRUGS (7)
  1. GILOTRIF [Suspect]
     Indication: NON-SMALL CELL LUNG CANCER
     Dosage: 40 MG
     Route: 048
     Dates: start: 20140215, end: 20140222
  2. GILOTRIF [Suspect]
     Dosage: 30 MG
     Route: 048
     Dates: start: 20140318, end: 20140322
  3. ASA [Concomitant]
     Route: 065
  4. ATENOLOL [Concomitant]
     Route: 065
  5. LEVOTHYROXINE [Concomitant]
     Route: 065
  6. METFORMIN [Concomitant]
     Route: 065
  7. HFA PROAIR [Concomitant]
     Route: 065

REACTIONS (6)
  - Mucosal inflammation [Recovered/Resolved]
  - Mucosal inflammation [Recovered/Resolved]
  - Rash [Not Recovered/Not Resolved]
  - Fatigue [Not Recovered/Not Resolved]
  - Epistaxis [Not Recovered/Not Resolved]
  - Dry eye [Not Recovered/Not Resolved]
